FAERS Safety Report 15076015 (Version 1)
Quarter: 2018Q2

REPORT INFORMATION
  Report Type: Spontaneous
  Country: US (occurrence: US)
  Receive Date: 20180627
  Receipt Date: 20180627
  Transmission Date: 20180711
  Serious: Yes (Hospitalization, Disabling, Other)
  Sender: FDA-Public Use
  Company Number: US-JNJFOC-20180632420

PATIENT
  Age: 62 Year
  Sex: Female

DRUGS (1)
  1. INVOKANA [Suspect]
     Active Substance: CANAGLIFLOZIN
     Indication: TYPE 2 DIABETES MELLITUS
     Route: 048
     Dates: start: 20170216, end: 20170621

REACTIONS (7)
  - Foot amputation [Unknown]
  - Sepsis [Unknown]
  - Gangrene [Unknown]
  - Cellulitis [Unknown]
  - Leg amputation [Unknown]
  - Skin ulcer [Recovering/Resolving]
  - Leg amputation [Unknown]

NARRATIVE: CASE EVENT DATE: 20170525
